FAERS Safety Report 20576613 (Version 1)
Quarter: 2022Q1

REPORT INFORMATION
  Report Type: Spontaneous
  Country: US (occurrence: None)
  Receive Date: 20220309
  Receipt Date: 20220309
  Transmission Date: 20220423
  Serious: No
  Sender: FDA-Public Use
  Company Number: None

PATIENT
  Sex: Female

DRUGS (1)
  1. HUMIRA [Suspect]
     Active Substance: ADALIMUMAB
     Indication: Rheumatoid arthritis
     Dosage: FREQUENCY : EVERY OTHER WEEK;?
     Route: 058
     Dates: start: 202203

REACTIONS (7)
  - Condition aggravated [None]
  - Skin swelling [None]
  - Pain of skin [None]
  - Erythema [None]
  - Feeling hot [None]
  - Drug ineffective [None]
  - Refusal of treatment by patient [None]
